FAERS Safety Report 9710642 (Version 1)
Quarter: 2013Q4

REPORT INFORMATION
  Report Type: Spontaneous
  Country: US (occurrence: US)
  Receive Date: 20131126
  Receipt Date: 20131126
  Transmission Date: 20140711
  Serious: No
  Sender: FDA-Public Use
  Company Number: US-BRISTOL-MYERS SQUIBB COMPANY-19001163

PATIENT
  Age: 73 Year
  Sex: Male
  Weight: 86.17 kg

DRUGS (4)
  1. BYDUREON 2MG SUSPENSION [Suspect]
     Indication: TYPE 2 DIABETES MELLITUS
     Route: 058
     Dates: start: 201302
  2. METFORMIN [Concomitant]
  3. STARLIX [Concomitant]
  4. ALLOPURINOL [Concomitant]

REACTIONS (1)
  - Injection site mass [Unknown]
